FAERS Safety Report 26003731 (Version 1)
Quarter: 2025Q4

REPORT INFORMATION
  Report Type: Report from Study
  Country: US (occurrence: US)
  Receive Date: 20251106
  Receipt Date: 20251106
  Transmission Date: 20260118
  Serious: Yes (Other)
  Sender: JOHNSON AND JOHNSON
  Company Number: US-JNJFOC-20251037320

PATIENT
  Sex: Female

DRUGS (4)
  1. SPRAVATO [Suspect]
     Active Substance: ESKETAMINE
     Indication: Depression
     Dosage: ^56 MG, 1 TOTAL DOSE^
     Route: 045
     Dates: start: 20241029, end: 20241029
  2. SPRAVATO [Suspect]
     Active Substance: ESKETAMINE
     Dosage: ^84 MG, 27 TOTAL DOSES^
     Route: 045
     Dates: start: 20241031, end: 20250506
  3. CANNABIS SATIVA SUBSP. INDICA TOP [Concomitant]
     Active Substance: CANNABIS SATIVA SUBSP. INDICA TOP
     Indication: Product used for unknown indication
  4. ADDERALL [Concomitant]
     Active Substance: AMPHETAMINE ASPARTATE\AMPHETAMINE SULFATE\DEXTROAMPHETAMINE SACCHARATE\DEXTROAMPHETAMINE SULFATE
     Indication: Product used for unknown indication

REACTIONS (9)
  - Mental impairment [Not Recovered/Not Resolved]
  - Slow speech [Recovered/Resolved]
  - Staring [Recovered/Resolved]
  - Dizziness [Unknown]
  - Memory impairment [Unknown]
  - Dysphemia [Unknown]
  - Anxiety [Unknown]
  - Off label use [Unknown]
  - Soliloquy [Recovered/Resolved]
